FAERS Safety Report 7722250-9 (Version None)
Quarter: 2011Q3

REPORT INFORMATION
  Report Type: 
  Country: None (occurrence: None)
  Receive Date: 20110831
  Receipt Date: 20110818
  Transmission Date: 20111222
  Serious: Yes (Life-Threatening, Hospitalization, Other)
  Sender: FDA-Public Use
  Company Number: CA-ELI_LILLY_AND_COMPANY-CA201108005767

PATIENT
  Sex: Female

DRUGS (16)
  1. TRAZODONE HYDROCHLORIDE [Concomitant]
  2. BUPROPION HCL [Concomitant]
  3. PAXIL [Concomitant]
  4. PERPHENAZINE [Concomitant]
  5. ZYPREXA [Suspect]
     Indication: SCHIZOPHRENIA
     Dosage: 1 DF, UNKNOWN
  6. ZYPREXA [Suspect]
     Dosage: 10 MG, EACH EVENING
  7. DIVALPROEX SODIUM [Concomitant]
  8. PROCYCLIDINE HYDROCHLORIDE 2MG TAB [Concomitant]
  9. ZYPREXA [Suspect]
     Dosage: 15 MG, EACH EVENING
  10. CLONAZEPAM [Concomitant]
  11. VALPROIC ACID [Concomitant]
  12. ZYPREXA [Suspect]
     Dosage: 30 MG, QD
  13. METHOTREXATE SODIUM [Concomitant]
  14. FLOVENT [Concomitant]
  15. CLOPIXOL ACUPHASE [Concomitant]
  16. CLOPIXOL DEPOT [Concomitant]

REACTIONS (16)
  - BRONCHITIS [None]
  - DRY MOUTH [None]
  - LARYNGITIS [None]
  - HYPERTENSION [None]
  - BLOOD TRIGLYCERIDES INCREASED [None]
  - OVERDOSE [None]
  - PNEUMONIA [None]
  - TYPE 2 DIABETES MELLITUS [None]
  - ACUTE RESPIRATORY FAILURE [None]
  - ASTHMA [None]
  - DYSFUNCTIONAL UTERINE BLEEDING [None]
  - SLEEP APNOEA SYNDROME [None]
  - BLINDNESS [None]
  - PLEURAL EFFUSION [None]
  - WEIGHT INCREASED [None]
  - TREMOR [None]
